FAERS Safety Report 6369771-1 (Version None)
Quarter: 2009Q3

REPORT INFORMATION
  Report Type: 
  Country: None (occurrence: None)
  Receive Date: 20090923
  Receipt Date: 20090911
  Transmission Date: 20100115
  Serious: No
  Sender: FDA-Public Use
  Company Number: US-B.I. PHARMACEUTICALS,INC./RIDGEFIELD-2005-BP-09228BP

PATIENT
  Age: 54 Year
  Sex: Male
  Weight: 77.2 kg

DRUGS (1)
  1. FLOMAX [Suspect]
     Indication: BENIGN PROSTATIC HYPERPLASIA
     Dosage: 0.4 MG
     Route: 048
     Dates: start: 20050107

REACTIONS (3)
  - BLOOD PRESSURE DECREASED [None]
  - URINARY HESITATION [None]
  - URINARY RETENTION [None]
